FAERS Safety Report 8249940-6 (Version None)
Quarter: 2012Q2

REPORT INFORMATION
  Report Type: 
  Country: None (occurrence: None)
  Receive Date: 20120402
  Receipt Date: 20120312
  Transmission Date: 20120825
  Serious: Yes (Hospitalization)
  Sender: FDA-Public Use
  Company Number: IT-BAYER-2012-015087

PATIENT
  Age: 20 Year
  Sex: Male

DRUGS (1)
  1. ASPIRIN [Suspect]
     Indication: INFLUENZA
     Dosage: DAILY DOSE 300 MG
     Route: 048
     Dates: start: 20120130, end: 20120130

REACTIONS (2)
  - DYSPNOEA [None]
  - VOMITING [None]
